FAERS Safety Report 23465171 (Version 1)
Quarter: 2024Q1

REPORT INFORMATION
  Report Type: Spontaneous
  Country: FR (occurrence: FR)
  Receive Date: 20240201
  Receipt Date: 20240201
  Transmission Date: 20240410
  Serious: Yes (Hospitalization, Disabling, Other)
  Sender: FDA-Public Use
  Company Number: None

PATIENT
  Age: 15 Year
  Sex: Female
  Weight: 70 kg

DRUGS (1)
  1. NEXPLANON [Suspect]
     Active Substance: ETONOGESTREL
     Indication: Hormonal contraception
     Dosage: 1 IMPLANT
     Route: 058
     Dates: start: 20240113

REACTIONS (3)
  - Product prescribing error [Recovered/Resolved with Sequelae]
  - Ruptured ectopic pregnancy [Recovered/Resolved with Sequelae]
  - Salpingectomy [Recovered/Resolved with Sequelae]

NARRATIVE: CASE EVENT DATE: 20240113
